FAERS Safety Report 5191980-8 (Version None)
Quarter: 2006Q4

REPORT INFORMATION
  Report Type: 
  Country: None (occurrence: None)
  Receive Date: 20061227
  Receipt Date: 20061214
  Transmission Date: 20070319
  Serious: Yes (Other)
  Sender: FDA-Public Use
  Company Number: US-AMGEN-STX203722

PATIENT
  Sex: Male

DRUGS (1)
  1. ENBREL [Suspect]
     Indication: RHEUMATOID ARTHRITIS
     Route: 058
     Dates: start: 20010801, end: 20020201

REACTIONS (6)
  - EYE INFLAMMATION [None]
  - EYE IRRITATION [None]
  - HERPES VIRUS INFECTION [None]
  - RED BLOOD CELL SEDIMENTATION RATE INCREASED [None]
  - SWELLING [None]
  - SYSTEMIC LUPUS ERYTHEMATOSUS [None]
